FAERS Safety Report 7657913-7 (Version None)
Quarter: 2011Q3

REPORT INFORMATION
  Report Type: 
  Country: None (occurrence: None)
  Receive Date: 20110805
  Receipt Date: 20110801
  Transmission Date: 20111222
  Serious: No
  Sender: FDA-Public Use
  Company Number: US-BIOGENIDEC-2011BI028684

PATIENT
  Sex: Female

DRUGS (5)
  1. TYSABRI [Suspect]
     Route: 042
     Dates: start: 20070323, end: 20080814
  2. AVONEX [Concomitant]
     Route: 030
     Dates: start: 20050318
  3. TYSABRI [Suspect]
     Indication: MULTIPLE SCLEROSIS
     Route: 042
     Dates: start: 20110621
  4. TYSABRI [Suspect]
     Route: 042
     Dates: start: 20050308
  5. AVONEX [Concomitant]
     Indication: MULTIPLE SCLEROSIS
     Route: 030
     Dates: start: 20090516

REACTIONS (9)
  - MOOD ALTERED [None]
  - URINARY TRACT DISORDER [None]
  - SWELLING [None]
  - MADAROSIS [None]
  - GASTROINTESTINAL DISORDER [None]
  - ALOPECIA [None]
  - ABDOMINAL DISTENSION [None]
  - STRESS [None]
  - MUSCLE SPASMS [None]
